FAERS Safety Report 10706396 (Version 1)
Quarter: 2015Q1

REPORT INFORMATION
  Report Type: Spontaneous
  Country: US (occurrence: US)
  Receive Date: 20150113
  Receipt Date: 20150113
  Transmission Date: 20150721
  Serious: Yes (Hospitalization)
  Sender: FDA-Public Use
  Company Number: US-RANBAXY-2014US-91513

PATIENT
  Age: 19 Year
  Sex: Female

DRUGS (2)
  1. ACTIVATED CHARCOAL [Suspect]
     Active Substance: ACTIVATED CHARCOAL
     Indication: PRODUCT USED FOR UNKNOWN INDICATION
     Dosage: UNK
     Route: 065
  2. IBUPROFEN. [Suspect]
     Active Substance: IBUPROFEN
     Indication: PRODUCT USED FOR UNKNOWN INDICATION
     Dosage: 24 G, SINGLE
     Route: 048

REACTIONS (5)
  - Oesophageal perforation [Unknown]
  - Overdose [Unknown]
  - Suicide attempt [Unknown]
  - Pneumopericardium [Unknown]
  - Subcutaneous emphysema [Unknown]
